FAERS Safety Report 6521389-3 (Version None)
Quarter: 2009Q4

REPORT INFORMATION
  Report Type: 
  Country: None (occurrence: None)
  Receive Date: 20091214
  Receipt Date: 20090603
  Transmission Date: 20100525
  Serious: Yes (Other)
  Sender: FDA-Public Use
  Company Number: 636492

PATIENT
  Age: 46 Year
  Sex: Male

DRUGS (5)
  1. PEGASYS [Suspect]
     Indication: DRUG USE FOR UNKNOWN INDICATION
     Dates: start: 20080220
  2. REBETOL [Suspect]
     Indication: DRUG USE FOR UNKNOWN INDICATION
  3. INSULIN (INSULIN) [Concomitant]
  4. HYDROCHLOROTHIAZIDE [Concomitant]
  5. LISINOPRIL [Concomitant]

REACTIONS (2)
  - HYPERGLYCAEMIA [None]
  - VISION BLURRED [None]
